FAERS Safety Report 9518349 (Version 1)
Quarter: 2013Q1

REPORT INFORMATION
  Report Type: Spontaneous
  Country: US (occurrence: None)
  Receive Date: 20130305
  Receipt Date: 20130305
  Transmission Date: 20140127
  Serious: Yes (Disabling)
  Sender: FDA-Public Use
  Company Number: 163-21880-12010198

PATIENT
  Age: 64 Year
  Sex: Female
  Weight: 66.68 kg

DRUGS (8)
  1. REVLIMID [Suspect]
     Indication: LYMPHOMA
     Dosage: 10 MG, 1 IN 1 D, PO
     Route: 048
     Dates: start: 20110328, end: 20110428
  2. REVLIMID [Suspect]
     Indication: PLASMA CELL MYELOMA
     Dosage: 10 MG, 1 IN 1 D, PO
     Route: 048
     Dates: start: 20110328, end: 20110428
  3. FUROSEMIDE (FUROSEMIDE) (UNKNOWN) [Concomitant]
  4. GEMFRIBROZIL (GEMFRIBROZIL) (UNKNOWN) [Concomitant]
  5. LISINOPRIL (LISINOPRIL) (UNKNOWN) [Concomitant]
  6. METOPROLOL (METOPROLOL) (UNKNOWN) [Concomitant]
  7. OMEPRAZOLE (OMEPRAZOLE) (UNKNOWN) [Concomitant]
  8. PAROXETINE (PAROXETINE) (UNKNOWN) (PAROXETINE) [Concomitant]

REACTIONS (1)
  - Sinusitis [None]
